FAERS Safety Report 15393030 (Version 2)
Quarter: 2019Q2

REPORT INFORMATION
  Report Type: Report from Study
  Country: BR (occurrence: BR)
  Receive Date: 20180917
  Receipt Date: 20190625
  Transmission Date: 20190711
  Serious: Yes (Other)
  Sender: FDA-Public Use
  Company Number: BR-UCBSA-2018033313

PATIENT
  Age: 19 Year
  Sex: Female
  Weight: 70 kg

DRUGS (3)
  1. LEVETIRACETAM. [Suspect]
     Active Substance: LEVETIRACETAM
     Indication: EPILEPSY
     Dosage: 1 ML, 2X/DAY (BID)
     Route: 048
     Dates: start: 201802
  2. PHENOBARBITAL. [Concomitant]
     Active Substance: PHENOBARBITAL
     Indication: EPILEPSY
     Dosage: UNK
  3. GARDENAL [Suspect]
     Active Substance: PHENOBARBITAL
     Indication: EPILEPSY
     Dosage: UNK
     Route: 048

REACTIONS (6)
  - Product dose omission [Unknown]
  - Maternal exposure during breast feeding [Unknown]
  - Somnolence [Recovering/Resolving]
  - Pregnancy on contraceptive [Not Recovered/Not Resolved]
  - Maternal exposure before pregnancy [Unknown]
  - Seizure [Recovering/Resolving]

NARRATIVE: CASE EVENT DATE: 2018
